FAERS Safety Report 7046073-1 (Version None)
Quarter: 2010Q4

REPORT INFORMATION
  Report Type: 
  Country: None (occurrence: None)
  Receive Date: 20101014
  Receipt Date: 20101001
  Transmission Date: 20110411
  Serious: Yes (Life-Threatening, Hospitalization)
  Sender: FDA-Public Use
  Company Number: DE-MYLANLABS-2009S1004767

PATIENT
  Age: 83 Year
  Sex: Female

DRUGS (3)
  1. BISOPROLOL [Suspect]
     Indication: PRODUCT USED FOR UNKNOWN INDICATION
     Route: 048
     Dates: start: 20060301, end: 20081126
  2. LISINOPRIL AND HYDROCHLOROTHIAZIDE [Concomitant]
     Dosage: 1 TABLETTE ENTHALT LISINOPRIL 20 MG UND HYDROCHLOROTHIAZID 12.5 MG
     Route: 048
  3. LOCOL [Concomitant]
     Indication: HYPERLIPIDAEMIA
     Dates: start: 20060301

REACTIONS (1)
  - BRADYARRHYTHMIA [None]
